FAERS Safety Report 19947936 (Version 14)
Quarter: 2022Q1

REPORT INFORMATION
  Report Type: Report from Study
  Country: ES (occurrence: None)
  Receive Date: 20211012
  Receipt Date: 20220121
  Transmission Date: 20220423
  Serious: Yes (Life-Threatening, Hospitalization, Other)
  Sender: FDA-Public Use
  Company Number: ES-EISAI MEDICAL RESEARCH-EC-2021-101239

PATIENT
  Age: 62 Year
  Sex: Male
  Weight: 66.4 kg

DRUGS (22)
  1. LENVATINIB [Suspect]
     Active Substance: LENVATINIB
     Indication: Non-small cell lung cancer metastatic
     Route: 048
     Dates: start: 20200608, end: 20211003
  2. PEMBROLIZUMAB [Suspect]
     Active Substance: PEMBROLIZUMAB
     Indication: Non-small cell lung cancer metastatic
     Route: 041
     Dates: start: 20200608, end: 20210727
  3. PEMBROLIZUMAB [Suspect]
     Active Substance: PEMBROLIZUMAB
     Route: 041
     Dates: start: 20200817, end: 20210817
  4. PEMBROLIZUMAB [Suspect]
     Active Substance: PEMBROLIZUMAB
     Route: 041
     Dates: start: 20210922, end: 20210922
  5. PEMETREXED [Suspect]
     Active Substance: PEMETREXED
     Indication: Non-small cell lung cancer metastatic
     Route: 042
     Dates: start: 20200608, end: 20200825
  6. PEMETREXED [Suspect]
     Active Substance: PEMETREXED
     Route: 042
     Dates: start: 20200923, end: 20200923
  7. CARBOPLATIN [Concomitant]
     Active Substance: CARBOPLATIN
     Indication: Non-small cell lung cancer metastatic
     Dates: start: 20200608, end: 20200825
  8. FAMOTIDINE [Concomitant]
     Active Substance: FAMOTIDINE
     Dates: start: 20200604, end: 20210907
  9. ZOLICO [Concomitant]
     Dates: start: 20200604, end: 20210907
  10. HIBOR [Concomitant]
     Dates: start: 20200604, end: 20210907
  11. TOUJEO [Concomitant]
     Active Substance: INSULIN GLARGINE
     Dates: start: 20200604, end: 20210907
  12. THIAMINE HYDROCHLORIDE [Concomitant]
     Active Substance: THIAMINE HYDROCHLORIDE
     Dates: start: 20200604, end: 20210907
  13. METFORMIN [Concomitant]
     Active Substance: METFORMIN HYDROCHLORIDE
     Dates: start: 20200604, end: 20210907
  14. PYRIDOXINE HYDROCHLORIDE [Concomitant]
     Active Substance: PYRIDOXINE HYDROCHLORIDE
     Dates: start: 20200604, end: 20210907
  15. AMLODIPINE [Concomitant]
     Active Substance: AMLODIPINE BESYLATE
     Dates: start: 20200604, end: 20210907
  16. TORSEMIDE [Concomitant]
     Active Substance: TORSEMIDE
     Dates: start: 20200604, end: 20210907
  17. COLCHICINE [Concomitant]
     Active Substance: COLCHICINE
     Dates: start: 20200617, end: 20210907
  18. ATORVASTATIN [Concomitant]
     Active Substance: ATORVASTATIN
     Dates: start: 20210202, end: 20210907
  19. RANOLAZINE HYDROCHLORIDE [Concomitant]
     Active Substance: RANOLAZINE HYDROCHLORIDE
     Dates: start: 20210817, end: 20210907
  20. SITAGLIPTIN [Concomitant]
     Active Substance: SITAGLIPTIN
     Dates: start: 20210817, end: 20210907
  21. HALOPERIDOL [Concomitant]
     Active Substance: HALOPERIDOL
     Dates: start: 20210817, end: 20210907
  22. ALLOPURINOL [Concomitant]
     Active Substance: ALLOPURINOL
     Dates: start: 20210818, end: 20210907

REACTIONS (5)
  - Pulmonary embolism [Recovering/Resolving]
  - Neutropenia [Recovered/Resolved]
  - Dysarthria [Recovering/Resolving]
  - Sepsis [Recovered/Resolved]
  - Malignant neoplasm progression [Recovering/Resolving]

NARRATIVE: CASE EVENT DATE: 20210908
